FAERS Safety Report 20951144 (Version 1)
Quarter: 2022Q2

REPORT INFORMATION
  Report Type: Spontaneous
  Country: US (occurrence: None)
  Receive Date: 20220610
  Receipt Date: 20220610
  Transmission Date: 20220720
  Serious: No
  Sender: FDA-Public Use
  Company Number: None

PATIENT
  Age: 64 Year
  Sex: Male
  Weight: 55.8 kg

DRUGS (6)
  1. EUCRISA [Suspect]
     Active Substance: CRISABOROLE
     Indication: Rosacea
     Dosage: OTHER QUANTITY : 1 TUBE;?FREQUENCY : TWICE A DAY;?
     Route: 061
     Dates: start: 20220523, end: 20220606
  2. EUCRISA [Suspect]
     Active Substance: CRISABOROLE
     Indication: Eczema
  3. VITAMINS [Concomitant]
     Active Substance: VITAMINS
  4. Omega 3 (vegetarian) [Concomitant]
  5. COENZYME Q10 [Concomitant]
     Active Substance: DIETARY SUPPLEMENT\UBIDECARENONE
  6. VITAMIN B12 [Concomitant]
     Active Substance: CYANOCOBALAMIN

REACTIONS (5)
  - Acne [None]
  - Pustule [None]
  - Rosacea [None]
  - Eczema [None]
  - Therapeutic product effect incomplete [None]

NARRATIVE: CASE EVENT DATE: 20220606
